FAERS Safety Report 4704564-X (Version None)
Quarter: 2005Q2

REPORT INFORMATION
  Report Type: 
  Country: None (occurrence: None)
  Receive Date: 20050629
  Receipt Date: 20050622
  Transmission Date: 20051028
  Serious: Yes (Life-Threatening)
  Sender: FDA-Public Use
  Company Number: 2004242918CA

PATIENT
  Age: 46 Year
  Sex: Male
  Weight: 89 kg

DRUGS (6)
  1. CAMPTOSAR [Suspect]
     Indication: HEPATIC NEOPLASM MALIGNANT
     Dosage: 180 MG/M*2 (CYCLIC INTERVAL: EVERY 2 WEEKS DAYS 1,2) INTRAVENOUS
     Route: 042
     Dates: start: 20040713, end: 20040928
  2. LEUCOVORIN CALCIUM [Suspect]
     Indication: HEPATIC NEOPLASM MALIGNANT
     Dosage: 200 MG/M*2 (CYCLIC INTERVAL: EVERY 2 WEEKS DAYS 1,2), INTRAVENOUS
     Route: 042
     Dates: start: 20040713, end: 20040929
  3. FLUOROURACIL [Suspect]
     Indication: HEPATIC NEOPLASM MALIGNANT
     Dosage: 1000 MG/M*2 (CYCLIC INTERVAL: EVERY 2 WEEKS DAYS 1,2), INTRAVENOUS
     Route: 042
     Dates: start: 20040713, end: 20040930
  4. ZOPICLONE (ZOPICLONE) [Concomitant]
  5. GLUCOSAMINE (GLUCOSAMINE) [Concomitant]
  6. VITAMINS (VITAMINS) [Concomitant]

REACTIONS (5)
  - HEPATIC ENCEPHALOPATHY [None]
  - HEPATIC FAILURE [None]
  - HEPATIC STEATOSIS [None]
  - PLEURAL EFFUSION [None]
  - POST PROCEDURAL COMPLICATION [None]
